FAERS Safety Report 9870521 (Version 1)
Quarter: 2014Q1

REPORT INFORMATION
  Report Type: Spontaneous
  Country: US (occurrence: None)
  Receive Date: 20140204
  Receipt Date: 20140204
  Transmission Date: 20141002
  Serious: Yes (Life-Threatening, Hospitalization, Disabling)
  Sender: FDA-Public Use
  Company Number: None

PATIENT
  Age: 61 Year
  Sex: Male
  Weight: 83.46 kg

DRUGS (1)
  1. LUCENTIS [Suspect]
     Indication: CYSTOID MACULAR OEDEMA
     Dates: start: 20130618, end: 20131231

REACTIONS (2)
  - Cerebrovascular accident [None]
  - Eye haemorrhage [None]
